FAERS Safety Report 5924933-X (Version None)
Quarter: 2008Q4

REPORT INFORMATION
  Report Type: 
  Country: None (occurrence: None)
  Receive Date: 20081020
  Receipt Date: 20081020
  Transmission Date: 20090506
  Serious: Yes (Other)
  Sender: FDA-Public Use
  Company Number: None

PATIENT
  Age: 25 Year
  Sex: Female
  Weight: 63.5036 kg

DRUGS (1)
  1. BUDESONIDE [Suspect]
     Indication: CROHN'S DISEASE
     Dosage: 9MG EVERY MORNING PO
     Route: 048
     Dates: start: 20081010, end: 20081012

REACTIONS (9)
  - ARTHRALGIA [None]
  - BACK PAIN [None]
  - LIP ULCERATION [None]
  - MOUTH ULCERATION [None]
  - OEDEMA PERIPHERAL [None]
  - PARAESTHESIA [None]
  - PHARYNGEAL ULCERATION [None]
  - RASH MACULO-PAPULAR [None]
  - SKIN ULCER [None]
